FAERS Safety Report 5740844-7 (Version None)
Quarter: 2008Q2

REPORT INFORMATION
  Report Type: 
  Country: None (occurrence: None)
  Receive Date: 20080515
  Receipt Date: 20080331
  Transmission Date: 20081010
  Serious: No
  Sender: FDA-Public Use
  Company Number: WAES 0804USA00262

PATIENT

DRUGS (1)
  1. ISENTRESS [Suspect]
     Dosage: 400 MG/BID/PO
     Route: 048

REACTIONS (1)
  - RASH [None]
